FAERS Safety Report 9148353 (Version 1)
Quarter: 2013Q1

REPORT INFORMATION
  Report Type: Spontaneous
  Country: US (occurrence: None)
  Receive Date: 20130226
  Receipt Date: 20130226
  Transmission Date: 20140127
  Serious: Yes (Death, Other)
  Sender: FDA-Public Use
  Company Number: 2013P1002443

PATIENT
  Age: 86 Year
  Sex: Male

DRUGS (2)
  1. INFUMORPH [Suspect]
     Indication: PAIN
     Dosage: 7.706 MG/ML; QD
     Dates: start: 20091012, end: 20130114
  2. INFUMORPH [Suspect]
     Indication: POST LAMINECTOMY SYNDROME
     Dosage: 7.706 MG/ML; QD
     Dates: start: 20091012, end: 20130114

REACTIONS (2)
  - Neoplasm malignant [None]
  - Chronic obstructive pulmonary disease [None]
